FAERS Safety Report 5499761-2 (Version None)
Quarter: 2007Q4

REPORT INFORMATION
  Report Type: 
  Country: None (occurrence: None)
  Receive Date: 20071026
  Receipt Date: 20071015
  Transmission Date: 20080405
  Serious: Yes (Other)
  Sender: FDA-Public Use
  Company Number: JP-PFIZER INC-2007062459

PATIENT
  Sex: Female
  Weight: 32.5 kg

DRUGS (5)
  1. ZYVOX [Suspect]
     Indication: STAPHYLOCOCCAL INFECTION
     Route: 042
     Dates: start: 20070719, end: 20070730
  2. FLUCONAZOLE [Concomitant]
     Indication: SYSTEMIC MYCOSIS
     Route: 042
     Dates: start: 20070710, end: 20070731
  3. ROCEPHIN [Concomitant]
     Route: 042
     Dates: start: 20070711, end: 20070718
  4. VANCOMYCIN HYDROCHLORIDE [Concomitant]
     Route: 042
     Dates: start: 20070714, end: 20070718
  5. MEROPEN [Concomitant]
     Route: 042
     Dates: start: 20070719, end: 20070723

REACTIONS (2)
  - HAEMATURIA [None]
  - PLATELET COUNT DECREASED [None]
